FAERS Safety Report 4544525-7 (Version None)
Quarter: 2005Q1

REPORT INFORMATION
  Report Type: 
  Country: None (occurrence: None)
  Receive Date: 20050104
  Receipt Date: 20041220
  Transmission Date: 20050727
  Serious: Yes (Death)
  Sender: FDA-Public Use
  Company Number: 9536

PATIENT
  Sex: Female

DRUGS (3)
  1. FLUOROURACIL [Suspect]
     Indication: NEOPLASM MALIGNANT
     Dosage: 600 MG/M2 DAILY
  2. PACLITAXEL [Suspect]
     Indication: NEOPLASM MALIGNANT
     Dosage: 100 MG/M2 PER_CYCLE
  3. GEMCITABINE [Suspect]
     Indication: NEOPLASM MALIGNANT
     Dosage: 200 MG/M2 PER_CYCLE

REACTIONS (4)
  - DRUG TOXICITY [None]
  - FUNGAEMIA [None]
  - NEUTROPHIL COUNT ABNORMAL [None]
  - WHITE BLOOD CELL DISORDER [None]
